FAERS Safety Report 10067586 (Version 1)
Quarter: 2014Q2

REPORT INFORMATION
  Report Type: Spontaneous
  Country: US (occurrence: None)
  Receive Date: 20140408
  Receipt Date: 20140408
  Transmission Date: 20141212
  Serious: Yes (Other)
  Sender: FDA-Public Use
  Company Number: None

PATIENT
  Age: 46 Year
  Sex: Male
  Weight: 92.08 kg

DRUGS (7)
  1. EMEND [Suspect]
     Indication: NAUSEA
     Route: 042
     Dates: start: 20140326
  2. GRANISETRON [Concomitant]
  3. DEXAMETHASONE [Concomitant]
  4. OMEPRAZOLE [Concomitant]
  5. OXALIPLATIN [Concomitant]
  6. 5FU [Concomitant]
  7. LEUCOVORIN [Concomitant]

REACTIONS (4)
  - Flushing [None]
  - Dyspnoea [None]
  - Erythema [None]
  - Infusion related reaction [None]
